FAERS Safety Report 8591788-7 (Version None)
Quarter: 2012Q3

REPORT INFORMATION
  Report Type: 
  Country: None (occurrence: None)
  Receive Date: 20120814
  Receipt Date: 20120808
  Transmission Date: 20120928
  Serious: Yes (Other)
  Sender: FDA-Public Use
  Company Number: PHHY2012NO068580

PATIENT
  Sex: Male

DRUGS (5)
  1. PREDNISOLONE [Concomitant]
     Route: 048
  2. TAXOTERE [Concomitant]
     Indication: NEOPLASM MALIGNANT
     Dates: start: 20101001, end: 20110801
  3. ZYTIGA [Concomitant]
     Dates: start: 20111201, end: 20120601
  4. ELIGARD [Concomitant]
     Route: 051
  5. ZOMETA [Suspect]
     Indication: OSTEOPOROSIS
     Route: 042
     Dates: start: 20101001, end: 20110101

REACTIONS (4)
  - GINGIVAL SWELLING [None]
  - ORAL INFECTION [None]
  - RENAL FAILURE [None]
  - OSTEONECROSIS OF JAW [None]
